FAERS Safety Report 6645345-X (Version None)
Quarter: 2010Q1

REPORT INFORMATION
  Report Type: 
  Country: None (occurrence: None)
  Receive Date: 20100322
  Receipt Date: 20100312
  Transmission Date: 20100710
  Serious: Yes (Hospitalization, Other)
  Sender: FDA-Public Use
  Company Number: US-AMGEN-QUU393821

PATIENT
  Sex: Female

DRUGS (26)
  1. ENBREL [Suspect]
     Indication: RHEUMATOID ARTHRITIS
     Route: 058
     Dates: start: 20031201
  2. CELEBREX [Concomitant]
  3. PREDNISONE TAB [Concomitant]
  4. OPIOIDS [Concomitant]
  5. REGLAN [Concomitant]
  6. VANCOMYCIN [Concomitant]
  7. DEMEROL [Concomitant]
  8. PHENERGAN HCL [Concomitant]
  9. VASOTEC [Concomitant]
  10. NEXIUM [Concomitant]
  11. MYLANTA [Concomitant]
  12. LEVOTHYROXINE SODIUM [Concomitant]
  13. PREMARIN [Concomitant]
  14. VALIUM [Concomitant]
  15. AMBIEN [Concomitant]
  16. ATIVAN [Concomitant]
  17. CALCIUM [Concomitant]
  18. DIOVAN [Concomitant]
  19. DOCUSATE [Concomitant]
  20. NASONEX [Concomitant]
  21. VICODIN [Concomitant]
  22. RESTASIS [Concomitant]
  23. PERCOCET [Concomitant]
  24. LIDODERM [Concomitant]
  25. FLECTOR [Concomitant]
  26. NORVASC [Concomitant]

REACTIONS (10)
  - ARTHRALGIA [None]
  - CELLULITIS [None]
  - DYSPNOEA [None]
  - GASTRIC ULCER [None]
  - INFUSION SITE ERYTHEMA [None]
  - INFUSION SITE OEDEMA [None]
  - JOINT SWELLING [None]
  - MUSCULOSKELETAL STIFFNESS [None]
  - STAPHYLOCOCCAL INFECTION [None]
  - WEIGHT INCREASED [None]
